FAERS Safety Report 25864821 (Version 1)
Quarter: 2025Q3

REPORT INFORMATION
  Report Type: Spontaneous
  Country: US (occurrence: US)
  Receive Date: 20250930
  Receipt Date: 20250930
  Transmission Date: 20251020
  Serious: Yes (Hospitalization, Other)
  Sender: NOVO NORDISK
  Company Number: US-NOVOPROD-1528994

PATIENT
  Age: 78 Year
  Sex: Female

DRUGS (1)
  1. TRESIBA [Suspect]
     Active Substance: INSULIN DEGLUDEC
     Indication: Type 2 diabetes mellitus
     Dosage: 26 IU, QD AT 2:00 PM
     Route: 058

REACTIONS (7)
  - Road traffic accident [Unknown]
  - Spinal fracture [Unknown]
  - Fall [Unknown]
  - Hip fracture [Unknown]
  - Memory impairment [Unknown]
  - Arthritis [Not Recovered/Not Resolved]
  - Muscular weakness [Unknown]

NARRATIVE: CASE EVENT DATE: 20200101
